FAERS Safety Report 26121664 (Version 1)
Quarter: 2025Q4

REPORT INFORMATION
  Report Type: Spontaneous
  Country: US (occurrence: US)
  Receive Date: 20251204
  Receipt Date: 20251204
  Transmission Date: 20260118
  Serious: Yes (Other)
  Sender: MYLAN
  Company Number: US-MYLANLABS-2025M1103296

PATIENT
  Age: 52 Year
  Sex: Female

DRUGS (4)
  1. ZOLEDRONIC ACID [Suspect]
     Active Substance: ZOLEDRONIC ACID
     Indication: Papillary thyroid cancer
     Dosage: UNK
  2. ZOLEDRONIC ACID [Suspect]
     Active Substance: ZOLEDRONIC ACID
     Indication: Thyroid cancer metastatic
  3. CABOZANTINIB [Suspect]
     Active Substance: CABOZANTINIB
     Indication: Papillary thyroid cancer
     Dosage: UNK
  4. CABOZANTINIB [Suspect]
     Active Substance: CABOZANTINIB
     Indication: Thyroid cancer metastatic

REACTIONS (2)
  - Drug ineffective [Unknown]
  - Disease progression [Unknown]
